FAERS Safety Report 17735201 (Version 1)
Quarter: 2020Q2

REPORT INFORMATION
  Report Type: Report from Study
  Country: None (occurrence: US)
  Receive Date: 20200501
  Receipt Date: 20200501
  Transmission Date: 20200714
  Serious: No
  Sender: FDA-Public Use
  Company Number: US-BIOVITRUM-2020US1236

PATIENT
  Sex: Female

DRUGS (2)
  1. GAMIFANT [Suspect]
     Active Substance: EMAPALUMAB-LZSG
     Indication: HAEMOPHAGOCYTIC LYMPHOHISTIOCYTOSIS
     Route: 042
     Dates: start: 20200226
  2. GAMIFANT [Suspect]
     Active Substance: EMAPALUMAB-LZSG
     Route: 042

REACTIONS (3)
  - Weight increased [Unknown]
  - Influenza [Unknown]
  - Pyrexia [Unknown]
